FAERS Safety Report 21173738 (Version 1)
Quarter: 2022Q3

REPORT INFORMATION
  Report Type: Spontaneous
  Country: US (occurrence: US)
  Receive Date: 20220804
  Receipt Date: 20220804
  Transmission Date: 20221027
  Serious: No
  Sender: FDA-Public Use
  Company Number: US-PERRIGO-21US032139

PATIENT
  Age: 15 Year
  Sex: Female
  Weight: 54.422 kg

DRUGS (3)
  1. LORATADINE [Suspect]
     Active Substance: LORATADINE
     Indication: Nasal congestion
     Dosage: 10 MG, SINGLE, IN MORNING
     Route: 048
     Dates: start: 20211207, end: 20211207
  2. LORATADINE [Suspect]
     Active Substance: LORATADINE
     Dosage: 10 MG, BID
     Route: 048
     Dates: start: 20211206, end: 20211206
  3. LORATADINE [Suspect]
     Active Substance: LORATADINE
     Dosage: 10 MG, QD, PRN
     Route: 048

REACTIONS (2)
  - Overdose [Recovered/Resolved]
  - Off label use [Not Recovered/Not Resolved]

NARRATIVE: CASE EVENT DATE: 20211206
